FAERS Safety Report 7505410-1 (Version None)
Quarter: 2011Q2

REPORT INFORMATION
  Report Type: 
  Country: None (occurrence: None)
  Receive Date: 20110526
  Receipt Date: 20110513
  Transmission Date: 20111010
  Serious: Yes (Hospitalization, Other)
  Sender: FDA-Public Use
  Company Number: PHHY2008JP23684

PATIENT
  Sex: Male

DRUGS (4)
  1. CGP 42446 [Suspect]
     Indication: METASTASES TO BONE
     Dosage: 4 MG, QMO
     Route: 042
     Dates: start: 20070721, end: 20080820
  2. DECADRON [Concomitant]
     Dosage: 1 MG, UNK
     Route: 048
     Dates: start: 20070721, end: 20080820
  3. ASPARA-CA [Concomitant]
     Indication: BLOOD CALCIUM DECREASED
  4. FLIVAS [Concomitant]
     Dosage: 80 MG, UNK
     Route: 048
     Dates: start: 20070721, end: 20080820

REACTIONS (3)
  - NEOPLASM MALIGNANT [None]
  - DYSURIA [None]
  - OSTEONECROSIS OF JAW [None]
